FAERS Safety Report 24173298 (Version 1)
Quarter: 2024Q3

REPORT INFORMATION
  Report Type: Spontaneous
  Country: EG (occurrence: EG)
  Receive Date: 20240805
  Receipt Date: 20240805
  Transmission Date: 20241017
  Serious: Yes (Death, Other)
  Sender: NOVO NORDISK
  Company Number: EG-NOVOPROD-1260277

PATIENT
  Sex: Female

DRUGS (1)
  1. INSULIN HUMAN [Suspect]
     Active Substance: INSULIN HUMAN
     Indication: Diabetes mellitus
     Dosage: 20 U/ MORNING AND 10 U OR 12 U/NIGHT

REACTIONS (1)
  - Death [Fatal]

NARRATIVE: CASE EVENT DATE: 20201215
